FAERS Safety Report 22033883 (Version 1)
Quarter: 2023Q1

REPORT INFORMATION
  Report Type: Spontaneous
  Country: US (occurrence: None)
  Receive Date: 20230222
  Receipt Date: 20230222
  Transmission Date: 20230417
  Serious: No
  Sender: FDA-Public Use
  Company Number: None

PATIENT
  Age: 39 Year
  Sex: Female
  Weight: 83.4 kg

DRUGS (1)
  1. IRINOTECAN [Suspect]
     Active Substance: IRINOTECAN
     Route: 041
     Dates: start: 20230222

REACTIONS (7)
  - Infusion related reaction [None]
  - Dyspnoea [None]
  - Nasal discomfort [None]
  - Speech disorder [None]
  - Product quality issue [None]
  - Tongue disorder [None]
  - Blepharospasm [None]

NARRATIVE: CASE EVENT DATE: 20230222
